FAERS Safety Report 7716588-9 (Version None)
Quarter: 2011Q3

REPORT INFORMATION
  Report Type: 
  Country: None (occurrence: None)
  Receive Date: 20110829
  Receipt Date: 20110824
  Transmission Date: 20111222
  Serious: Yes (Other)
  Sender: FDA-Public Use
  Company Number: CN-ASTRAZENECA-2011SE49499

PATIENT
  Age: 48 Year
  Sex: Male

DRUGS (1)
  1. LIDOCAINE [Suspect]

REACTIONS (4)
  - FACIAL SPASM [None]
  - LOSS OF CONSCIOUSNESS [None]
  - INCORRECT ROUTE OF DRUG ADMINISTRATION [None]
  - YAWNING [None]
